FAERS Safety Report 8619620-3 (Version None)
Quarter: 2012Q3

REPORT INFORMATION
  Report Type: 
  Country: None (occurrence: None)
  Receive Date: 20120824
  Receipt Date: 20120821
  Transmission Date: 20120928
  Serious: Yes (Hospitalization)
  Sender: FDA-Public Use
  Company Number: US-TEVA-337777USA

PATIENT
  Sex: Female

DRUGS (10)
  1. FENTANYL [Concomitant]
     Indication: ABDOMINAL PAIN
     Dosage: 48 MICROGRAM DAILY;
  2. DICYCLOMINE [Concomitant]
     Indication: MUSCLE SPASMS
     Dosage: 80 MILLIGRAM DAILY;
  3. ESTRADIOL [Concomitant]
     Indication: MENOPAUSE
     Dosage: .0071 MILLIGRAM DAILY;
  4. PANTOPRAZOLE SODIUM [Concomitant]
     Indication: PRODUCT USED FOR UNKNOWN INDICATION
     Dosage: 40 MILLIGRAM DAILY;
  5. HYZAAR [Concomitant]
     Indication: PRODUCT USED FOR UNKNOWN INDICATION
  6. OXYCODONE HCL [Concomitant]
     Indication: PRODUCT USED FOR UNKNOWN INDICATION
  7. INVESTIGATIONAL DRUG (ABT-888 VELIPARIB) [Suspect]
     Indication: NEOPLASM
  8. LEUCOVORIN CALCIUM [Suspect]
     Indication: NEOPLASM
     Dosage: ON DAY 1 AND DAY 15
     Route: 042
     Dates: start: 20120320, end: 20120320
  9. IRINOTECAN HYDROCHLORIDE [Suspect]
     Indication: NEOPLASM
     Dosage: ON DAY 1 AND DAY
     Route: 042
     Dates: start: 20120320, end: 20120320
  10. FLUOROURACIL [Suspect]
     Indication: NEOPLASM
     Dosage: OVER DAYS 1-3 AND 15-17 OF EACH 28 DAY CYCLE
     Route: 042
     Dates: start: 20120320, end: 20120321

REACTIONS (1)
  - CHOLANGITIS [None]
